FAERS Safety Report 15440951 (Version 1)
Quarter: 2018Q3

REPORT INFORMATION
  Report Type: Spontaneous
  Country: US (occurrence: US)
  Receive Date: 20180925
  Receipt Date: 20180925
  Transmission Date: 20181010
  Serious: Yes (Life-Threatening)
  Sender: FDA-Public Use
  Company Number: None

PATIENT
  Age: 69 Year
  Sex: Female
  Weight: 24.95 kg

DRUGS (1)
  1. VALSARTAN 320MG [Suspect]
     Active Substance: VALSARTAN
     Indication: HYPERTENSION
     Dosage: ?          QUANTITY:1 DF DOSAGE FORM;?
     Route: 048
     Dates: start: 20180313, end: 20180919

REACTIONS (3)
  - Blister [None]
  - Pain in extremity [None]
  - Rash [None]

NARRATIVE: CASE EVENT DATE: 20171214
